FAERS Safety Report 18841765 (Version 1)
Quarter: 2021Q1

REPORT INFORMATION
  Report Type: Spontaneous
  Country: IT (occurrence: IT)
  Receive Date: 20210203
  Receipt Date: 20210203
  Transmission Date: 20210419
  Serious: Yes (Death)
  Sender: FDA-Public Use
  Company Number: IT-ABBVIE-21K-083-3759179-00

PATIENT
  Age: 72 Year
  Sex: Male
  Weight: 90 kg

DRUGS (1)
  1. IBRUTINIB [Suspect]
     Active Substance: IBRUTINIB
     Indication: LYMPHOMA
     Route: 048
     Dates: start: 20201010, end: 20210105

REACTIONS (3)
  - Hypertension [Fatal]
  - Neurological symptom [Fatal]
  - Subdural haematoma evacuation [Fatal]

NARRATIVE: CASE EVENT DATE: 20210105
